FAERS Safety Report 4681549-3 (Version None)
Quarter: 2005Q2

REPORT INFORMATION
  Report Type: 
  Country: None (occurrence: None)
  Receive Date: 20050603
  Receipt Date: 20050523
  Transmission Date: 20051028
  Serious: Yes (Other)
  Sender: FDA-Public Use
  Company Number: US-GLAXOSMITHKLINE-A0559885A

PATIENT
  Age: 87 Year
  Sex: Female
  Weight: 63 kg

DRUGS (5)
  1. OS-CAL 500+D TABLETS [Suspect]
     Indication: OSTEOPOROSIS
     Route: 048
     Dates: start: 20030101
  2. TRIAMTERENE AND HYDROCHLOROTHIAZIDE [Concomitant]
     Indication: BLOOD PRESSURE
     Route: 048
  3. GLUCOTROL XL [Concomitant]
     Route: 048
  4. WARFARIN [Concomitant]
  5. GLIPIZIDE [Concomitant]
     Route: 048

REACTIONS (6)
  - ATRIAL FIBRILLATION [None]
  - BLOOD GLUCOSE INCREASED [None]
  - DEPRESSION [None]
  - DRUG LEVEL DECREASED [None]
  - DYSPHAGIA [None]
  - NAUSEA [None]
